FAERS Safety Report 7371586-2 (Version None)
Quarter: 2011Q1

REPORT INFORMATION
  Report Type: 
  Country: None (occurrence: None)
  Receive Date: 20110322
  Receipt Date: 20110322
  Transmission Date: 20110831
  Serious: Yes (Other)
  Sender: FDA-Public Use
  Company Number: None

PATIENT
  Sex: Female
  Weight: 58.9676 kg

DRUGS (1)
  1. MIRENA [Suspect]
     Indication: CONTRACEPTION
     Dates: start: 20080801, end: 20101201

REACTIONS (5)
  - INFLUENZA LIKE ILLNESS [None]
  - FATIGUE [None]
  - WEIGHT INCREASED [None]
  - OROPHARYNGEAL PAIN [None]
  - ANXIETY [None]
